FAERS Safety Report 10731588 (Version 2)
Quarter: 2015Q1

REPORT INFORMATION
  Report Type: Spontaneous
  Country: FR (occurrence: FR)
  Receive Date: 20150123
  Receipt Date: 20150129
  Transmission Date: 20150721
  Serious: Yes (Death, Hospitalization, Other)
  Sender: FDA-Public Use
  Company Number: FR-009507513-1501FRA008182

PATIENT
  Age: 91 Year
  Sex: Male
  Weight: 41 kg

DRUGS (7)
  1. MOLSIDOMINE [Concomitant]
     Active Substance: MOLSIDOMINE
  2. ALFUZOSIN HYDROCHLORIDE. [Concomitant]
     Active Substance: ALFUZOSIN HYDROCHLORIDE
  3. FUROSEMIDE. [Suspect]
     Active Substance: FUROSEMIDE
     Dosage: UNK
     Route: 048
  4. ACETAMINOPHEN. [Concomitant]
     Active Substance: ACETAMINOPHEN
  5. CLOXACILLIN [Suspect]
     Active Substance: CLOXACILLIN
     Indication: STAPHYLOCOCCAL SEPSIS
     Dosage: 8 G, QD
     Dates: start: 20120705, end: 20120716
  6. CARBIMAZOLE [Concomitant]
     Active Substance: CARBIMAZOLE
  7. GENTALLINE [Suspect]
     Active Substance: GENTAMICIN SULFATE
     Indication: STAPHYLOCOCCAL SEPSIS
     Dosage: 150 MG, DAILY
     Dates: start: 20120709, end: 20120712

REACTIONS (1)
  - Acute kidney injury [Fatal]

NARRATIVE: CASE EVENT DATE: 20120711
